FAERS Safety Report 23969213 (Version 1)
Quarter: 2024Q2

REPORT INFORMATION
  Report Type: Spontaneous
  Country: NZ (occurrence: NZ)
  Receive Date: 20240612
  Receipt Date: 20240612
  Transmission Date: 20240717
  Serious: Yes (Hospitalization)
  Sender: FDA-Public Use
  Company Number: NZ-BoehringerIngelheim-2024-BI-033318

PATIENT
  Age: 4 Decade
  Sex: Male

DRUGS (1)
  1. JARDIANCE [Suspect]
     Active Substance: EMPAGLIFLOZIN
     Indication: Product used for unknown indication

REACTIONS (3)
  - Kidney infection [Unknown]
  - Kidney infection [Unknown]
  - Glycosylated haemoglobin increased [Unknown]
